FAERS Safety Report 11440989 (Version 1)
Quarter: 2015Q3

REPORT INFORMATION
  Report Type: Spontaneous
  Country: US (occurrence: US)
  Receive Date: 20150821
  Receipt Date: 20150821
  Transmission Date: 20151125
  Serious: No
  Sender: FDA-Public Use
  Company Number: US-ELI_LILLY_AND_COMPANY-US200712002972

PATIENT
  Sex: Female

DRUGS (1)
  1. CYMBALTA [Suspect]
     Active Substance: DULOXETINE HYDROCHLORIDE
     Dosage: 30 MG, DAILY (1/D)
     Dates: start: 200704, end: 20071203

REACTIONS (5)
  - Blood pressure increased [Unknown]
  - Hyperhidrosis [Unknown]
  - Tinnitus [Unknown]
  - Disorientation [Unknown]
  - Dizziness [Unknown]
